FAERS Safety Report 10178554 (Version 1)
Quarter: 2014Q2

REPORT INFORMATION
  Report Type: Spontaneous
  Country: US (occurrence: None)
  Receive Date: 20140516
  Receipt Date: 20140516
  Transmission Date: 20141212
  Serious: Yes (Hospitalization)
  Sender: FDA-Public Use
  Company Number: None

PATIENT
  Age: 71 Year
  Sex: Male
  Weight: 82.7 kg

DRUGS (1)
  1. SULFAMETHOXAZOLE/TRIMETHOPRIM [Suspect]
     Dates: start: 20140508, end: 20140513

REACTIONS (5)
  - Penile pain [None]
  - Rash [None]
  - Renal failure acute [None]
  - Erythema multiforme [None]
  - No reaction on previous exposure to drug [None]
